FAERS Safety Report 16347016 (Version 7)
Quarter: 2019Q3

REPORT INFORMATION
  Report Type: Spontaneous
  Country: FR (occurrence: FR)
  Receive Date: 20190523
  Receipt Date: 20190913
  Transmission Date: 20191004
  Serious: Yes (Hospitalization, Other)
  Sender: FDA-Public Use
  Company Number: FR-AUROBINDO-AUR-APL-2019-029421

PATIENT
  Age: 72 Year
  Sex: Male

DRUGS (11)
  1. ALPRAZOLAM. [Concomitant]
     Active Substance: ALPRAZOLAM
     Indication: PRODUCT USED FOR UNKNOWN INDICATION
     Dosage: UNK UNK, UNKNOWN FREQ.
     Route: 065
     Dates: start: 2018
  2. FLUINDIONE [Interacting]
     Active Substance: FLUINDIONE
     Indication: THROMBOSIS PROPHYLAXIS
     Dosage: 20 MILLIGRAM, ONCE A DAY (1/4 OR 1/2 TABLET)
     Route: 065
     Dates: start: 2018
  3. LEUPRORELIN [Concomitant]
     Active Substance: LEUPROLIDE ACETATE
     Indication: ANTIANDROGEN THERAPY
  4. DIGOXIN. [Interacting]
     Active Substance: DIGOXIN
     Indication: ATRIAL FIBRILLATION
     Dosage: UNK
     Route: 065
     Dates: start: 2018, end: 2018
  5. FLUINDIONE [Interacting]
     Active Substance: FLUINDIONE
     Indication: ANTICOAGULANT THERAPY
     Dosage: 1 DOSAGE FORM, ONCE A DAY
     Route: 065
     Dates: start: 201806
  6. NEBIVOLOL. [Concomitant]
     Active Substance: NEBIVOLOL
     Indication: PRODUCT USED FOR UNKNOWN INDICATION
     Dosage: UNK UNK, UNKNOWN FREQ.
     Route: 065
     Dates: start: 2018
  7. PANTOPRAZOLE [Suspect]
     Active Substance: PANTOPRAZOLE
     Indication: ANTACID THERAPY
     Dosage: UNK UNK, UNKNOWN FREQ.
     Route: 065
     Dates: start: 2018
  8. FUROSEMIDE. [Concomitant]
     Active Substance: FUROSEMIDE
     Indication: PRODUCT USED FOR UNKNOWN INDICATION
     Dosage: UNK, THERAPEUTIC INR BETWEEN 2 AND 3.
     Route: 065
     Dates: start: 2018
  9. XTANDI [Interacting]
     Active Substance: ENZALUTAMIDE
     Indication: PROSTATE CANCER
     Dosage: 160 MILLIGRAM, UNKNOWN FREQ.)
     Route: 048
     Dates: start: 201803, end: 201901
  10. POTASSIUM CHLORIDE. [Concomitant]
     Active Substance: POTASSIUM CHLORIDE
     Indication: PRODUCT USED FOR UNKNOWN INDICATION
     Dosage: UNK UNK, UNKNOWN FREQ.
     Route: 065
     Dates: start: 2018
  11. LEUPRORELIN [Concomitant]
     Active Substance: LEUPROLIDE ACETATE
     Indication: ADENOCARCINOMA
     Dosage: UNK UNK, UNKNOWN FREQ.
     Route: 065
     Dates: start: 2018

REACTIONS (16)
  - Haemoglobin decreased [Unknown]
  - Venous thrombosis [Unknown]
  - Cardioactive drug level decreased [Unknown]
  - Gastrointestinal haemorrhage [Recovered/Resolved]
  - Gastritis erosive [Not Recovered/Not Resolved]
  - Enzyme induction [Unknown]
  - Drug ineffective [Unknown]
  - Oesophagitis [Not Recovered/Not Resolved]
  - Haemodynamic instability [Recovered/Resolved]
  - International normalised ratio decreased [Unknown]
  - Drug interaction [Unknown]
  - International normalised ratio abnormal [Recovered/Resolved]
  - Gastric ulcer [Unknown]
  - Rectal haemorrhage [Unknown]
  - Drug level decreased [Unknown]
  - Haematemesis [Unknown]

NARRATIVE: CASE EVENT DATE: 2018
